FAERS Safety Report 5997714-9 (Version None)
Quarter: 2008Q4

REPORT INFORMATION
  Report Type: 
  Country: None (occurrence: None)
  Receive Date: 20081212
  Receipt Date: 20081118
  Transmission Date: 20090506
  Serious: No
  Sender: FDA-Public Use
  Company Number: US-ABBOTT-08P-163-0488619-00

PATIENT
  Sex: Male
  Weight: 102.15 kg

DRUGS (2)
  1. HUMIRA [Suspect]
     Indication: PSORIATIC ARTHROPATHY
     Dosage: UNKNOWN
     Dates: start: 20080514
  2. HUMIRA [Suspect]
     Indication: JOINT SWELLING

REACTIONS (3)
  - ABDOMINAL DISTENSION [None]
  - ERECTILE DYSFUNCTION [None]
  - WEIGHT INCREASED [None]
